FAERS Safety Report 7620267 (Version 2)
Quarter: 2013Q2

REPORT INFORMATION
  Report Type: Spontaneous
  Country: US (occurrence: US)
  Receive Date: 20101007
  Receipt Date: 20130613
  Transmission Date: 20140414
  Serious: Yes (Hospitalization, Other)
  Sender: FDA-Public Use
  Company Number: US-ROCHE-712650

PATIENT
  Age: 18 Year
  Sex: Male
  Weight: 77.1 kg

DRUGS (2)
  1. ACCUTANE [Suspect]
     Indication: ACNE
     Route: 065
  2. ACCUTANE [Suspect]
     Route: 065
     Dates: start: 20050101, end: 20050228

REACTIONS (6)
  - Colitis ulcerative [Unknown]
  - Pancreatitis acute [Recovering/Resolving]
  - Autoimmune hepatitis [Recovering/Resolving]
  - Cholangitis sclerosing [Unknown]
  - Crohn^s disease [Unknown]
  - Inflammatory bowel disease [Unknown]
